FAERS Safety Report 4534789-8 (Version None)
Quarter: 2004Q4

REPORT INFORMATION
  Report Type: 
  Country: None (occurrence: None)
  Receive Date: 20041222
  Receipt Date: 20040309
  Transmission Date: 20050328
  Serious: No
  Sender: FDA-Public Use
  Company Number: US-BRISTOL-MYERS SQUIBB COMPANY-12528881

PATIENT
  Age: 66 Year
  Sex: Male
  Weight: 88 kg

DRUGS (5)
  1. PRAVACHOL [Suspect]
     Indication: BLOOD CHOLESTEROL INCREASED
     Route: 048
     Dates: start: 19950101
  2. ZETIA [Concomitant]
  3. CELEXA [Concomitant]
  4. ATENOLOL [Concomitant]
  5. XANAX [Concomitant]

REACTIONS (1)
  - RASH ERYTHEMATOUS [None]
